FAERS Safety Report 14112784 (Version 1)
Quarter: 2017Q4

REPORT INFORMATION
  Report Type: Spontaneous
  Country: US (occurrence: US)
  Receive Date: 20171021
  Receipt Date: 20171021
  Transmission Date: 20180321
  Serious: Yes (Other)
  Sender: FDA-Public Use
  Company Number: US-009507513-1710USA007708

PATIENT
  Age: 21 Year
  Sex: Female
  Weight: 49.89 kg

DRUGS (1)
  1. NEXPLANON [Suspect]
     Active Substance: ETONOGESTREL
     Indication: CONTRACEPTION
     Dosage: 3 YEARS IMPLANT, INSIDE THE RIGHT ARM
     Route: 059

REACTIONS (5)
  - Chest pain [Unknown]
  - Vomiting [Unknown]
  - Blindness [Unknown]
  - Implant site pain [Unknown]
  - Abdominal pain upper [Unknown]
